FAERS Safety Report 13858547 (Version 1)
Quarter: 2017Q3

REPORT INFORMATION
  Report Type: Spontaneous
  Country: US (occurrence: US)
  Receive Date: 20170810
  Receipt Date: 20170810
  Transmission Date: 20171127
  Serious: No
  Sender: FDA-Public Use
  Company Number: None

PATIENT
  Sex: Male
  Weight: 43.65 kg

DRUGS (1)
  1. ARNUITY ELLIPTA [Suspect]
     Active Substance: FLUTICASONE FUROATE
     Indication: ASTHMA
     Dosage: QUANTITY:1 PUFF(S);?
     Route: 055
     Dates: start: 20170804, end: 20170807

REACTIONS (1)
  - Asthma [None]

NARRATIVE: CASE EVENT DATE: 20170806
